FAERS Safety Report 16106495 (Version 1)
Quarter: 2019Q1

REPORT INFORMATION
  Report Type: Report from Study
  Country: DE (occurrence: DE)
  Receive Date: 20190322
  Receipt Date: 20190322
  Transmission Date: 20190418
  Serious: Yes (Death)
  Sender: FDA-Public Use
  Company Number: DE-PFIZER INC-2018519781

PATIENT
  Age: 66 Year
  Sex: Male
  Weight: 52.4 kg

DRUGS (3)
  1. DOCETAXEL. [Suspect]
     Active Substance: DOCETAXEL
     Indication: NON-SMALL CELL LUNG CANCER
     Dosage: FORMULATION: LIQUID; DAILY DOSE:75 MG/2 BODY SURFACE AREA
     Route: 042
     Dates: start: 20160729, end: 20160909
  2. VARGATEF [Suspect]
     Active Substance: NINTEDANIB
     Indication: NON-SMALL CELL LUNG CANCER
     Dosage: 400 MG, 1X/DAY
     Route: 048
     Dates: start: 20160730, end: 20160924
  3. VARGATEF [Suspect]
     Active Substance: NINTEDANIB
     Indication: LUNG ADENOCARCINOMA

REACTIONS (12)
  - Diarrhoea [Fatal]
  - Neutrophil count decreased [Fatal]
  - Pain [Fatal]
  - Neutrophil count decreased [Fatal]
  - Diarrhoea [Fatal]
  - Diarrhoea [Fatal]
  - Neoplasm progression [Fatal]
  - Neutrophil count decreased [Fatal]
  - Stomatitis [Fatal]
  - Death [Fatal]
  - Anaemia [Fatal]
  - Peripheral sensory neuropathy [Fatal]

NARRATIVE: CASE EVENT DATE: 20160805
